FAERS Safety Report 21442762 (Version 1)
Quarter: 2022Q4

REPORT INFORMATION
  Report Type: Report from Study
  Country: US (occurrence: US)
  Receive Date: 20221012
  Receipt Date: 20221012
  Transmission Date: 20230113
  Serious: No
  Sender: FDA-Public Use
  Company Number: US-ABBVIE-4148567

PATIENT
  Age: 66 Year
  Sex: Male
  Weight: 118 kg

DRUGS (12)
  1. SKYRIZI [Suspect]
     Active Substance: RISANKIZUMAB-RZAA
     Indication: Psoriasis
     Route: 058
     Dates: start: 20220622
  2. Trazodone HCI [Concomitant]
     Indication: Product used for unknown indication
     Route: 048
     Dates: start: 20220615
  3. LOSARTAN POTASSIUM [Concomitant]
     Active Substance: LOSARTAN POTASSIUM
     Indication: Product used for unknown indication
     Route: 048
     Dates: start: 20220615
  4. ATORVASTATIN CALCIUM [Concomitant]
     Active Substance: ATORVASTATIN CALCIUM
     Indication: Product used for unknown indication
     Route: 048
     Dates: start: 20220615
  5. Bupropion  HCI [Concomitant]
     Indication: Product used for unknown indication
     Route: 048
     Dates: start: 20220615
  6. SIMVASTATIN [Concomitant]
     Active Substance: SIMVASTATIN
     Indication: Product used for unknown indication
     Route: 048
     Dates: start: 20220615
  7. DOCUSATE SODIUM [Concomitant]
     Active Substance: DOCUSATE SODIUM
     Indication: Product used for unknown indication
     Route: 048
     Dates: start: 20220615
  8. Fluticasone Propionate nasal suspension [Concomitant]
     Indication: Product used for unknown indication
     Route: 045
     Dates: start: 20220615
  9. Sertraline HCI [Concomitant]
     Indication: Product used for unknown indication
     Route: 048
     Dates: start: 20220615
  10. KETOCONAZOLE [Concomitant]
     Active Substance: KETOCONAZOLE
     Indication: Product used for unknown indication
     Dates: start: 20220615
  11. Betamethasone Dipropionate 0.05 % [Concomitant]
     Indication: Product used for unknown indication
     Dates: start: 20220615
  12. Clobetasol Propionate External solution 0.05% [Concomitant]
     Indication: Product used for unknown indication
     Dates: start: 20220615

REACTIONS (1)
  - Headache [Not Recovered/Not Resolved]

NARRATIVE: CASE EVENT DATE: 20220622
